FAERS Safety Report 25582188 (Version 1)
Quarter: 2025Q3

REPORT INFORMATION
  Report Type: Spontaneous
  Country: US (occurrence: US)
  Receive Date: 20250719
  Receipt Date: 20250719
  Transmission Date: 20251020
  Serious: Yes (Hospitalization, Other)
  Sender: AMGEN
  Company Number: US-AMGEN-USASP2025137307

PATIENT
  Age: 65 Year
  Sex: Female

DRUGS (2)
  1. PREDNISONE [Suspect]
     Active Substance: PREDNISONE
     Indication: Mononeuropathy multiplex
     Route: 048
  2. PREDNISONE [Suspect]
     Active Substance: PREDNISONE
     Indication: Carpal tunnel syndrome
     Route: 048

REACTIONS (7)
  - Eosinophilic granulomatosis with polyangiitis [Unknown]
  - Glomerulonephritis rapidly progressive [Unknown]
  - Acute kidney injury [Unknown]
  - Mononeuropathy multiplex [Unknown]
  - Asthma [Unknown]
  - Therapy partial responder [Unknown]
  - Off label use [Unknown]
